FAERS Safety Report 7676391 (Version 5)
Quarter: 2013Q4

REPORT INFORMATION
  Report Type: Spontaneous
  Country: US (occurrence: US)
  Receive Date: 20101119
  Receipt Date: 20131118
  Transmission Date: 20140711
  Serious: Yes (Other)
  Sender: FDA-Public Use
  Company Number: US-ROCHE-720332

PATIENT
  Age: 15 Year
  Sex: Female
  Weight: 71.2 kg

DRUGS (5)
  1. ACCUTANE [Suspect]
     Indication: ACNE
     Route: 065
     Dates: start: 1998, end: 2000
  2. ALLEGRA-D [Concomitant]
  3. LORATADINE [Concomitant]
  4. DESLORATADINE [Concomitant]
  5. MOMETASONE [Concomitant]

REACTIONS (12)
  - Colitis ulcerative [Unknown]
  - Gastrointestinal injury [Unknown]
  - Anaemia [Unknown]
  - Anxiety [Unknown]
  - Psychological trauma [Unknown]
  - Inflammatory bowel disease [Unknown]
  - Intestinal obstruction [Unknown]
  - Intestinal haemorrhage [Unknown]
  - Irritable bowel syndrome [Recovering/Resolving]
  - Upper respiratory tract infection [Unknown]
  - Sinusitis [Unknown]
  - Folliculitis [Unknown]
